FAERS Safety Report 5333689-3 (Version None)
Quarter: 2007Q2

REPORT INFORMATION
  Report Type: 
  Country: None (occurrence: None)
  Receive Date: 20070524
  Receipt Date: 20070518
  Transmission Date: 20071010
  Serious: Yes (Other)
  Sender: FDA-Public Use
  Company Number: B0414523A

PATIENT
  Age: 46 Year
  Sex: Male
  Weight: 56 kg

DRUGS (1)
  1. VALTREX [Suspect]
     Indication: HERPES SIMPLEX
     Dosage: 500MG PER DAY
     Route: 048

REACTIONS (2)
  - HALLUCINATION [None]
  - MALAISE [None]
